FAERS Safety Report 23665587 (Version 1)
Quarter: 2024Q1

REPORT INFORMATION
  Report Type: Spontaneous
  Country: US (occurrence: US)
  Receive Date: 20240323
  Receipt Date: 20240323
  Transmission Date: 20240410
  Serious: No
  Sender: FDA-Public Use
  Company Number: US-TEVA-VS-3156953

PATIENT
  Age: 31 Year
  Sex: Female

DRUGS (2)
  1. AYGESTIN [Suspect]
     Active Substance: NORETHINDRONE ACETATE
     Indication: Product used for unknown indication
     Route: 065
  2. NORETHINDRONE ACETATE [Suspect]
     Active Substance: NORETHINDRONE ACETATE
     Indication: Product used for unknown indication
     Route: 065

REACTIONS (2)
  - Product prescribing error [Unknown]
  - Discontinued product administered [Unknown]
